FAERS Safety Report 17015312 (Version 1)
Quarter: 2019Q4

REPORT INFORMATION
  Report Type: Spontaneous
  Country: IT (occurrence: IT)
  Receive Date: 20191111
  Receipt Date: 20191111
  Transmission Date: 20200122
  Serious: Yes (Hospitalization)
  Sender: FDA-Public Use
  Company Number: IT-TEVA-2019-IT-1135821

PATIENT
  Age: 59 Year
  Sex: Female

DRUGS (6)
  1. TOPAMAX [Suspect]
     Active Substance: TOPIRAMATE
     Dosage: 2500 MILLIGRAM
     Route: 048
  2. SONIREM 10 MG /ML GOCCE ORALI, SOLUZIONE [Suspect]
     Active Substance: ZOLPIDEM TARTRATE
     Dosage: 30ML
     Route: 048
  3. ZOLOFT [Suspect]
     Active Substance: SERTRALINE HYDROCHLORIDE
     Dosage: 3750 MILLIGRAM
     Route: 048
  4. DEPAMAG 200 MG COMPRESSE GASTRORESISTENTI [Suspect]
     Active Substance: VALPROATE MAGNESIUM
     Dosage: 8000 MILLIGRAM
     Route: 048
  5. NEBIVOLOL. [Suspect]
     Active Substance: NEBIVOLOL
     Dosage: 175 MILLIGRAM
     Route: 048
  6. RANIDIL 150 MG COMPRESSE RIVESTITE CON FILM [Suspect]
     Active Substance: RANITIDINE HYDROCHLORIDE
     Dosage: 900 MILLIGRAM
     Route: 048

REACTIONS (2)
  - Substance abuse [Recovered/Resolved]
  - Intentional self-injury [Recovered/Resolved]

NARRATIVE: CASE EVENT DATE: 20190403
